FAERS Safety Report 9107286 (Version 4)
Quarter: 2013Q4

REPORT INFORMATION
  Report Type: Spontaneous
  Country: BR (occurrence: BR)
  Receive Date: 20130221
  Receipt Date: 20131205
  Transmission Date: 20140711
  Serious: Yes (Life-Threatening)
  Sender: FDA-Public Use
  Company Number: PHHY2013BR016888

PATIENT
  Age: 76 Year
  Sex: Female

DRUGS (4)
  1. CODATEN [Suspect]
     Indication: ARTHRALGIA
     Dosage: 1 DF, IN THE MORNING
     Route: 048
  2. CODATEN [Suspect]
     Dosage: 1 DF, IN THE MORNING
     Route: 048
  3. ARTROSIL [Suspect]
     Dosage: UNK UKN, UNK
  4. ALENIA [Concomitant]
     Indication: ASTHMA

REACTIONS (18)
  - Asthenia [Not Recovered/Not Resolved]
  - Oedema peripheral [Recovering/Resolving]
  - Malaise [Unknown]
  - Influenza [Unknown]
  - Arthralgia [Not Recovered/Not Resolved]
  - Urticaria [Recovered/Resolved]
  - Pruritus [Recovered/Resolved]
  - Erythema [Recovering/Resolving]
  - Drug ineffective [Unknown]
  - Suicidal ideation [Unknown]
  - Osteoarthritis [Unknown]
  - Arthritis [Unknown]
  - Bone erosion [Not Recovered/Not Resolved]
  - Dysstasia [Not Recovered/Not Resolved]
  - Mass [Unknown]
  - Gait disturbance [Not Recovered/Not Resolved]
  - Joint stiffness [Unknown]
  - Pain in extremity [Not Recovered/Not Resolved]
